FAERS Safety Report 15327812 (Version 1)
Quarter: 2018Q3

REPORT INFORMATION
  Report Type: Spontaneous
  Country: US (occurrence: US)
  Receive Date: 20180828
  Receipt Date: 20180828
  Transmission Date: 20181010
  Serious: No
  Sender: FDA-Public Use
  Company Number: US-ROCHE-2121423

PATIENT
  Sex: Male
  Weight: 79 kg

DRUGS (1)
  1. ALECENSA [Suspect]
     Active Substance: ALECTINIB HYDROCHLORIDE
     Indication: PLASMA CELL MYELOMA
     Dosage: 4 CAPS BID; ONGOING: YES
     Route: 048
     Dates: start: 20180428

REACTIONS (4)
  - Off label use [Unknown]
  - Intentional product use issue [Unknown]
  - Nausea [Unknown]
  - Vomiting [Unknown]
